FAERS Safety Report 7462491-1 (Version None)
Quarter: 2011Q2

REPORT INFORMATION
  Report Type: 
  Country: None (occurrence: None)
  Receive Date: 20110506
  Receipt Date: 20110203
  Transmission Date: 20111010
  Serious: Yes (Hospitalization, Other)
  Sender: FDA-Public Use
  Company Number: US-BAYER-201039439NA

PATIENT
  Age: 31 Year
  Sex: Female

DRUGS (2)
  1. YASMIN [Suspect]
     Route: 048
  2. ORAL CONTRACEPTIVE NOS [Concomitant]

REACTIONS (4)
  - CHOLECYSTITIS CHRONIC [None]
  - CHOLECYSTECTOMY [None]
  - CHOLELITHIASIS [None]
  - CHOLECYSTITIS ACUTE [None]
